FAERS Safety Report 5602739-9 (Version None)
Quarter: 2008Q1

REPORT INFORMATION
  Report Type: 
  Country: None (occurrence: None)
  Receive Date: 20080125
  Receipt Date: 20080123
  Transmission Date: 20080703
  Serious: Yes (Other)
  Sender: FDA-Public Use
  Company Number: DE-BRISTOL-MYERS SQUIBB COMPANY-13979927

PATIENT
  Age: 39 Year
  Sex: Female
  Weight: 47 kg

DRUGS (6)
  1. REYATAZ [Suspect]
     Indication: ACQUIRED IMMUNODEFICIENCY SYNDROME
     Dates: start: 20041026, end: 20071225
  2. VIREAD [Concomitant]
     Indication: ACQUIRED IMMUNODEFICIENCY SYNDROME
     Dosage: 1 DOSAGE FORM=300 UNITS NOT SPECIFIED
     Dates: start: 20041026
  3. EPIVIR [Concomitant]
     Indication: ACQUIRED IMMUNODEFICIENCY SYNDROME
     Dosage: 1 DOSAGE FORM=300 UNITS NOT SPECIFIED
     Dates: start: 20041026
  4. NORVIR [Concomitant]
     Indication: ACQUIRED IMMUNODEFICIENCY SYNDROME
     Dosage: 1 DOSAGE FORM=100 UNITS NOT SPECIFIED
     Dates: start: 20041026
  5. TAVEGIL [Concomitant]
  6. CETIRIZINE HCL [Concomitant]

REACTIONS (2)
  - TRANSAMINASES INCREASED [None]
  - URTICARIA CHRONIC [None]
